FAERS Safety Report 4667554-1 (Version None)
Quarter: 2005Q2

REPORT INFORMATION
  Report Type: 
  Country: None (occurrence: None)
  Receive Date: 20050428
  Receipt Date: 20041214
  Transmission Date: 20051028
  Serious: Yes (Other)
  Sender: FDA-Public Use
  Company Number: 2004111059

PATIENT
  Age: 52 Year
  Sex: Male

DRUGS (5)
  1. AZITHROMYCIN [Suspect]
     Indication: ILL-DEFINED DISORDER
     Dates: start: 20040810, end: 20040814
  2. ESCITALOPRAM OXALATE [Suspect]
     Indication: DEPRESSION
  3. FLUTICASONE PROPIONATE [Concomitant]
  4. FEXOFENADINE HYDROCHLORIDE [Concomitant]
  5. LANSOPRAZOLE [Concomitant]

REACTIONS (1)
  - MYOCLONUS [None]
